FAERS Safety Report 6619046-8 (Version None)
Quarter: 2010Q1

REPORT INFORMATION
  Report Type: 
  Country: None (occurrence: None)
  Receive Date: 20100308
  Receipt Date: 20100305
  Transmission Date: 20100710
  Serious: Yes (Other)
  Sender: FDA-Public Use
  Company Number: US-PFIZER INC-2008154410

PATIENT
  Sex: Female
  Weight: 68.027 kg

DRUGS (5)
  1. GEODON [Suspect]
     Indication: PSYCHOTIC DISORDER
     Dosage: FREQUENCY: 2X/DAILY,
     Dates: start: 20081104
  2. PREDNISONE [Suspect]
     Indication: BRONCHITIS
     Dates: start: 20080101
  3. FLAGYL [Suspect]
  4. TRAZODONE HYDROCHLORIDE [Concomitant]
     Dosage: UNK
  5. VISTARIL [Concomitant]
     Dosage: UNK

REACTIONS (3)
  - HALLUCINATION, VISUAL [None]
  - HYPERSENSITIVITY [None]
  - PSYCHOTIC DISORDER [None]
